FAERS Safety Report 12990610 (Version 1)
Quarter: 2016Q4

REPORT INFORMATION
  Report Type: Spontaneous
  Country: TR (occurrence: TR)
  Receive Date: 20161201
  Receipt Date: 20161201
  Transmission Date: 20170207
  Serious: Yes (Other)
  Sender: FDA-Public Use
  Company Number: TR-MYLANLABS-2016M1052119

PATIENT

DRUGS (1)
  1. MELPHALAN [Suspect]
     Active Substance: MELPHALAN
     Indication: RETINOBLASTOMA
     Route: 013

REACTIONS (1)
  - Thrombosis [Recovered/Resolved]
